FAERS Safety Report 5958474-0 (Version None)
Quarter: 2008Q4

REPORT INFORMATION
  Report Type: 
  Country: None (occurrence: None)
  Receive Date: 20081119
  Receipt Date: 20081111
  Transmission Date: 20090506
  Serious: Yes (Hospitalization)
  Sender: FDA-Public Use
  Company Number: DE-ROCHE-587759

PATIENT
  Sex: Male
  Weight: 94 kg

DRUGS (11)
  1. CAPECITABINE [Suspect]
     Indication: COLORECTAL CANCER STAGE IV
     Dosage: DRUG REGIMEN; TEMPORARILY INTERRUPTED ON 18 SEPTEMBER 2008. FREQUENCY: 41 DAYS DAILY, 7 DAYS PANS.
     Route: 048
     Dates: start: 20080813, end: 20080918
  2. CAPECITABINE [Suspect]
     Route: 048
     Dates: end: 20081016
  3. BEVACIZUMAB [Suspect]
     Indication: COLORECTAL CANCER STAGE IV
     Dosage: DOSAGE FORM: INFUSION.THE DRUG WAS TEMPORARILY INTERRUPTED ON 25 SEPTEMBER 2008.
     Route: 042
     Dates: start: 20080813, end: 20080904
  4. BEVACIZUMAB [Suspect]
     Route: 042
     Dates: end: 20080925
  5. BEVACIZUMAB [Suspect]
     Route: 042
     Dates: end: 20081016
  6. OXALIPLATIN [Suspect]
     Indication: COLORECTAL CANCER STAGE IV
     Dosage: DOSAGE FORM: INFUSION. THE DRUG WAS TEMPORARILY INTERRUPTED ON 25 SEPTEMBER 2008.
     Route: 042
     Dates: start: 20080813, end: 20080904
  7. OXALIPLATIN [Suspect]
     Route: 042
     Dates: end: 20080925
  8. OXALIPLATIN [Suspect]
     Route: 042
     Dates: end: 20081016
  9. IMATINIB MESYLATE [Suspect]
     Indication: COLORECTAL CANCER STAGE IV
     Dosage: DRUG REGIMEN: TEMPORARILY INTERRUPTED ON 23 SEPTEMBER 2008.
     Route: 048
     Dates: start: 20080813, end: 20080923
  10. IMATINIB MESYLATE [Suspect]
     Route: 048
     Dates: end: 20081016
  11. IRINOTECAN HYDROCHLORIDE [Suspect]
     Route: 065

REACTIONS (2)
  - DIARRHOEA [None]
  - ILEUS [None]
